FAERS Safety Report 5902822-4 (Version None)
Quarter: 2008Q3

REPORT INFORMATION
  Report Type: 
  Country: None (occurrence: None)
  Receive Date: 20080926
  Receipt Date: 20080916
  Transmission Date: 20090109
  Serious: Yes (Other)
  Sender: FDA-Public Use
  Company Number: 2008US002469

PATIENT
  Age: 4 Year
  Sex: Male

DRUGS (1)
  1. PROGRAF [Suspect]
     Indication: RENAL TRANSPLANT
     Dosage: 0.3 MG/KG, UID/QD, ORAL
     Route: 048

REACTIONS (6)
  - DEMYELINATION [None]
  - EAR INFECTION [None]
  - NERVOUS SYSTEM DISORDER [None]
  - PERIVENTRICULAR LEUKOMALACIA [None]
  - TONSILLITIS [None]
  - UPPER RESPIRATORY TRACT INFECTION [None]
